FAERS Safety Report 12109560 (Version 1)
Quarter: 2016Q1

REPORT INFORMATION
  Report Type: Spontaneous
  Country: US (occurrence: US)
  Receive Date: 20160224
  Receipt Date: 20160224
  Transmission Date: 20160526
  Serious: No
  Sender: FDA-Public Use
  Company Number: US-BAYER-2016-033525

PATIENT
  Age: 59 Year
  Sex: Male
  Weight: 117.9 kg

DRUGS (3)
  1. ADEMPAS [Suspect]
     Active Substance: RIOCIGUAT
     Indication: PRODUCT USED FOR UNKNOWN INDICATION
     Dosage: UNK
  2. TRACLEER [Concomitant]
     Active Substance: BOSENTAN
     Dosage: UNK
  3. TYVASO [Suspect]
     Active Substance: TREPROSTINIL
     Indication: PULMONARY HYPERTENSION
     Dosage: 54 ?G, QID
     Route: 055
     Dates: start: 20100811

REACTIONS (1)
  - Product use issue [None]

NARRATIVE: CASE EVENT DATE: 201601
